FAERS Safety Report 10953263 (Version 4)
Quarter: 2018Q3

REPORT INFORMATION
  Report Type: Spontaneous
  Country: US (occurrence: US)
  Receive Date: 20150325
  Receipt Date: 20180918
  Transmission Date: 20181010
  Serious: Yes (Other)
  Sender: FDA-Public Use
  Company Number: US-PFIZER INC-2015101663

PATIENT
  Age: 81 Year
  Sex: Female
  Weight: 67.12 kg

DRUGS (34)
  1. METOPROLOL TARTRATE. [Concomitant]
     Active Substance: METOPROLOL TARTRATE
     Indication: ESSENTIAL HYPERTENSION
     Dosage: 12.5 MG, 2X/DAY  (TAKE 0.5 TABLET ), (PUT ME TO SLEEP)
     Route: 048
     Dates: start: 20160401
  2. FLAXSEED [Concomitant]
     Active Substance: FLAX SEED
     Indication: ROUTINE HEALTH MAINTENANCE
     Dosage: 2000 MG, DAILY
     Route: 048
     Dates: start: 20110307
  3. ESTER C [Concomitant]
     Dosage: 500 MG, 2X/DAY, (1 W/LUNCH AND 1 AT BEDTIME FOR EYES)
  4. FISH OIL OMEGA 3 [Concomitant]
     Active Substance: FISH OIL
     Dosage: 1000 MG, 1X/DAY, (EPA  AND DHA 1 W/DINNER)
  5. ZEAXANTHIN [Concomitant]
     Active Substance: ZEAXANTHIN
     Dosage: 4 MG, 1X/DAY, (W/BREAKFAST)
  6. LYRICA [Suspect]
     Active Substance: PREGABALIN
     Indication: PAIN
  7. LUTEIN?ZEAXANTHIN [Concomitant]
     Indication: MACULAR DEGENERATION
     Dosage: UNK UNK, 1X/DAY, [LUTEIN? 6 MG]/[ZEAXANTHIN ?1 MG]
     Route: 048
     Dates: start: 20110307
  8. PROBIOTICS [Concomitant]
     Active Substance: PROBIOTICS NOS
     Dosage: UNK UNK, 1X/DAY, (10 BILLION ACTIVE CULTURES, 1 W/LUNCH)
  9. VITAMIN C [Concomitant]
     Active Substance: ASCORBIC ACID
     Indication: ROUTINE HEALTH MAINTENANCE
     Dosage: 500 MG, 1X/DAY, (TAKE 1 TABLET BEDTIME)
     Route: 048
     Dates: start: 20100726
  10. CALCIUM [Concomitant]
     Active Substance: CALCIUM
     Indication: ROUTINE HEALTH MAINTENANCE
     Dosage: 750 MG, DAILY
     Route: 048
     Dates: start: 20100301
  11. MAGNESIUM GLYCINATE [Concomitant]
     Active Substance: MAGNESIUM GLYCINATE
     Dosage: 400 MG, 1X/DAY, (1 W/DINNER)
  12. VITAMIN D3 [Concomitant]
     Active Substance: CHOLECALCIFEROL
     Dosage: 1000 IU, UNK, (W/LUNCH)
  13. VITAMIN E [Concomitant]
     Active Substance: .ALPHA.-TOCOPHEROL
     Indication: ROUTINE HEALTH MAINTENANCE
     Dosage: 400 IU, DAILY
     Route: 048
     Dates: start: 20110307
  14. LEVOTHYROXINE SODIUM. [Concomitant]
     Active Substance: LEVOTHYROXINE SODIUM
     Indication: HYPOTHYROIDISM
     Dosage: 75 UG, DAILY, (30 TO 60 MINUTES BEFORE BREAKFAST)
     Route: 048
     Dates: start: 20100512
  15. ALPHA LIPOIC ACID [Concomitant]
     Active Substance: .ALPHA.-LIPOIC ACID
     Dosage: 600 MG, 2X/DAY, (1 W/ BREAKFAST, . 1 W/DINNER)
  16. LYRICA [Suspect]
     Active Substance: PREGABALIN
     Indication: NEUROPATHY PERIPHERAL
     Dosage: 400 MG, 1X/DAY [2 CAPSULES ONCE DAILY BY MOUTH AT BEDTIME]
     Route: 048
  17. PANTOPRAZOLE SODIUM. [Concomitant]
     Active Substance: PANTOPRAZOLE SODIUM
     Indication: GASTROOESOPHAGEAL REFLUX DISEASE
     Dosage: 40 MG, 1X/DAY, (TAKE 1 TABLET 30 MINUTES BEFORE DINNER)/(BEFORE BREAKFAST DAILY)
     Route: 048
     Dates: start: 20160401
  18. LOSARTAN POTASSIUM. [Concomitant]
     Active Substance: LOSARTAN POTASSIUM
     Indication: ESSENTIAL HYPERTENSION
     Dosage: 50 MG, DAILY
     Route: 048
     Dates: start: 20160718
  19. ATORVASTATIN CALCIUM. [Concomitant]
     Active Substance: ATORVASTATIN CALCIUM
     Indication: BLOOD CHOLESTEROL INCREASED
     Dosage: 7.5 MG, 1X/DAY
  20. ECOTRIN [Concomitant]
     Active Substance: ASPIRIN
     Indication: ANTICOAGULANT THERAPY
     Dosage: 81 MG, UNK, (SAFETY COATED ASPIRIN 1 AT 9:00PM )
  21. LIDODERM [Concomitant]
     Active Substance: LIDOCAINE
     Indication: MYELOPATHY
  22. ASTELIN [Concomitant]
     Active Substance: AZELASTINE HYDROCHLORIDE
     Indication: SEASONAL ALLERGY
     Dosage: 137 UG, 2X/DAY  (INSERT 2 SQUIRTS IN EACH NOSTRIL IN EACH NOSTRIL )
     Route: 045
     Dates: start: 20110713
  23. FLAXSEED [Concomitant]
     Active Substance: FLAX SEED
     Dosage: 1000 MG, 1X/DAY, (1 W/DINNER)
  24. LIDODERM [Concomitant]
     Active Substance: LIDOCAINE
     Indication: BACK PAIN
     Dosage: 5 %, UNK, (APPLY UP TO 3 PATCHES TO THE AFFECTED AREAS AND LEAVE IN PLACE FOR 12 HOURS THEN REMOVE )
     Dates: start: 20131211
  25. VITAMIN D3 [Concomitant]
     Active Substance: CHOLECALCIFEROL
     Indication: ROUTINE HEALTH MAINTENANCE
     Dosage: 400 IU, 2X/DAY
     Route: 048
     Dates: start: 20100726
  26. AZELASTINE HCL [Concomitant]
     Active Substance: AZELASTINE HYDROCHLORIDE
     Indication: SINUSITIS
     Dosage: UNK
  27. CALCIUM CARBONATE AND VITAMIN D [Concomitant]
     Active Substance: CALCIUM CARBONATE\VITAMIN D
     Dosage: 750 MG, 1X/DAY, (WITH 1D3 AND K, 1 W/DINNER)
  28. LUTEIN [Concomitant]
     Active Substance: LUTEIN
     Dosage: 20 MG, 1X/DAY, (W/BREAKFAST)
  29. LYRICA [Suspect]
     Active Substance: PREGABALIN
     Indication: NEURALGIA
     Dosage: 400 MG, DAILY (2 CAPSULES DAILY)
     Route: 048
     Dates: start: 20150402
  30. MAGNESIUM OXIDE. [Concomitant]
     Active Substance: MAGNESIUM OXIDE
     Indication: ROUTINE HEALTH MAINTENANCE
     Dosage: 400 MG, 2X/DAY
     Route: 048
     Dates: start: 20110713
  31. ASPIRIN 81 [Concomitant]
     Active Substance: ASPIRIN
     Indication: CAROTID ARTERIOSCLEROSIS
     Dosage: 81 MG, DAILY
     Dates: start: 20111011
  32. DIPHENOXYLATE/ATROPINE [Concomitant]
     Active Substance: ATROPINE\DIPHENOXYLATE
     Indication: DIARRHOEA
     Dosage: UNK (ATROPINE SULFATE 0.025 MG, DIPHENOXYLATE HYDROCHLORIDE 2.5MG)
     Route: 048
     Dates: start: 20111117
  33. BETA CAROTENE [Concomitant]
     Indication: ROUTINE HEALTH MAINTENANCE
     Dosage: 25000 IU, DAILY, (W/LUNCH)
     Route: 048
     Dates: start: 20110307
  34. ATORVASTATIN CALCIUM. [Concomitant]
     Active Substance: ATORVASTATIN CALCIUM
     Indication: TYPE V HYPERLIPIDAEMIA
     Dosage: 5 MG, 1X/DAY
     Route: 048
     Dates: start: 20131202

REACTIONS (8)
  - Off label use [Unknown]
  - Pain [Not Recovered/Not Resolved]
  - Intentional product misuse [Unknown]
  - Body height decreased [Unknown]
  - Pain in extremity [Unknown]
  - Malaise [Unknown]
  - Spinal fracture [Not Recovered/Not Resolved]
  - Arthralgia [Unknown]

NARRATIVE: CASE EVENT DATE: 2016
